FAERS Safety Report 8352007-X (Version None)
Quarter: 2012Q2

REPORT INFORMATION
  Report Type: 
  Country: None (occurrence: None)
  Receive Date: 20120509
  Receipt Date: 20120430
  Transmission Date: 20120825
  Serious: Yes (Hospitalization, Other)
  Sender: FDA-Public Use
  Company Number: IMP_05878_2012

PATIENT
  Age: 65 Year
  Sex: Female

DRUGS (4)
  1. LETROZOLE [Suspect]
     Indication: PRODUCT USED FOR UNKNOWN INDICATION
     Dosage: (DF), (1.25 MG, DF)
  2. LETROZOLE [Suspect]
     Indication: PRODUCT USED FOR UNKNOWN INDICATION
     Dosage: (DF), (1.25 MG, DF)
  3. ZOLEDRONOC ACID [Concomitant]
  4. ALENDRONATE SODIUM [Concomitant]

REACTIONS (7)
  - DEHYDRATION [None]
  - FATIGUE [None]
  - MYALGIA [None]
  - ARTHRALGIA [None]
  - DECREASED APPETITE [None]
  - HYPERCALCAEMIA [None]
  - VOMITING [None]
